FAERS Safety Report 25306890 (Version 2)
Quarter: 2025Q2

REPORT INFORMATION
  Report Type: Spontaneous
  Country: US (occurrence: US)
  Receive Date: 20250513
  Receipt Date: 20250617
  Transmission Date: 20250716
  Serious: Yes (Hospitalization, Other)
  Sender: SANOFI AVENTIS
  Company Number: US-SA-2025SA135927

PATIENT
  Age: 72 Year
  Sex: Female

DRUGS (1)
  1. DUPIXENT [Suspect]
     Active Substance: DUPILUMAB
     Indication: Dermatitis atopic
     Dosage: 300 MG, QOW
     Route: 058
     Dates: start: 202409

REACTIONS (10)
  - Pulmonary thrombosis [Unknown]
  - Thrombosis [Unknown]
  - Sneezing [Unknown]
  - Cough [Unknown]
  - Rash macular [Not Recovered/Not Resolved]
  - Skin haemorrhage [Recovered/Resolved]
  - Skin weeping [Recovered/Resolved]
  - Skin fissures [Recovered/Resolved]
  - Pruritus [Recovered/Resolved]
  - Dermatitis atopic [Unknown]

NARRATIVE: CASE EVENT DATE: 20240901
